FAERS Safety Report 18096275 (Version 3)
Quarter: 2020Q4

REPORT INFORMATION
  Report Type: Report from Study
  Country: US (occurrence: US)
  Receive Date: 20200731
  Receipt Date: 20201120
  Transmission Date: 20210113
  Serious: Yes (Other)
  Sender: FDA-Public Use
  Company Number: US-ACADIA PHARMACEUTICALS INC.-ACA-2020-PIM-002452

PATIENT
  Age: 76 Year
  Sex: Male
  Weight: 100 kg

DRUGS (7)
  1. SEROQUEL [Suspect]
     Active Substance: QUETIAPINE FUMARATE
     Indication: PRODUCT USED FOR UNKNOWN INDICATION
     Dosage: UNK
  2. SEROQUEL [Suspect]
     Active Substance: QUETIAPINE FUMARATE
     Dosage: 100MG AT BEDTIME (INCREASE IN DOSAGE)
  3. SINEMET [Concomitant]
     Active Substance: CARBIDOPA\LEVODOPA
     Indication: PRODUCT USED FOR UNKNOWN INDICATION
     Dosage: 25/100 FOUR TIMES DAILY
  4. NUPLAZID [Suspect]
     Active Substance: PIMAVANSERIN TARTRATE
     Indication: PARKINSON^S DISEASE PSYCHOSIS
     Dosage: 34 MILLIGRAM, QD
     Route: 048
     Dates: start: 20200715
  5. NUPLAZID [Suspect]
     Active Substance: PIMAVANSERIN TARTRATE
     Indication: HALLUCINATION
     Dosage: 34 MILLIGRAM, QD
     Route: 048
     Dates: start: 202009
  6. NUPLAZID [Suspect]
     Active Substance: PIMAVANSERIN TARTRATE
     Indication: DELUSION
  7. NEUPRO [Concomitant]
     Active Substance: ROTIGOTINE
     Indication: PRODUCT USED FOR UNKNOWN INDICATION
     Dosage: 6 MG CHANGE PATCH DAILY

REACTIONS (19)
  - Bladder disorder [Not Recovered/Not Resolved]
  - Delusion [Unknown]
  - Agitation [Unknown]
  - Foreign body in throat [Not Recovered/Not Resolved]
  - Sleep apnoea syndrome [Not Recovered/Not Resolved]
  - Disturbance in attention [Unknown]
  - Gastric disorder [Unknown]
  - Constipation [Not Recovered/Not Resolved]
  - Abnormal behaviour [Unknown]
  - Ill-defined disorder [Unknown]
  - Heart rate decreased [Not Recovered/Not Resolved]
  - Hallucination [Unknown]
  - Throat irritation [Not Recovered/Not Resolved]
  - Confusional state [Unknown]
  - Therapeutic response unexpected [Unknown]
  - Crying [Unknown]
  - Gait disturbance [Unknown]
  - Hallucination [Not Recovered/Not Resolved]
  - Posture abnormal [Unknown]

NARRATIVE: CASE EVENT DATE: 202007
